FAERS Safety Report 12819027 (Version 13)
Quarter: 2017Q4

REPORT INFORMATION
  Report Type: Other
  Country: JP (occurrence: JP)
  Receive Date: 20161006
  Receipt Date: 20171113
  Transmission Date: 20180320
  Serious: Yes (Hospitalization, Other)
  Sender: FDA-Public Use
  Company Number: JP-CELLTRION INC.-2016JP005511

PATIENT

DRUGS (25)
  1. INFLIXIMAB BS FOR I.V. INFUSION100 MG [NK] [Suspect]
     Active Substance: INFLIXIMAB
     Dosage: 300 MG/BODY/DAY
     Route: 042
     Dates: start: 20160920, end: 20160920
  2. INFLIXIMAB BS FOR I.V. INFUSION100 MG [NK] [Suspect]
     Active Substance: INFLIXIMAB
     Dosage: 300 MG/BODY/DAY
     Route: 042
     Dates: start: 20161116, end: 20161116
  3. ASACOL [Concomitant]
     Active Substance: MESALAMINE
     Indication: COLITIS ULCERATIVE
     Dosage: 2400 MG/DAY
     Route: 065
     Dates: end: 20170321
  4. RESTAMIN                           /00000401/ [Concomitant]
     Active Substance: DIPHENHYDRAMINE
     Dosage: 30 MG/DAY
     Dates: start: 20170111, end: 20170111
  5. PENTASA [Concomitant]
     Active Substance: MESALAMINE
     Indication: COLITIS ULCERATIVE
     Dosage: 1 G, DAILY
     Dates: start: 20170426
  6. CALONAL [Concomitant]
     Active Substance: ACETAMINOPHEN
     Dosage: 400 MG/DAY
     Dates: start: 20170111, end: 20170111
  7. METHYLERGOMETRINE MALEATE [Concomitant]
     Active Substance: METHYLERGONOVINE MALEATE
     Indication: PROPHYLAXIS
     Dosage: 0.375 MG/DAY
     Dates: start: 20170101, end: 20170105
  8. INFLIXIMAB BS FOR I.V. INFUSION100 MG [NK] [Suspect]
     Active Substance: INFLIXIMAB
     Dosage: 300 MG/BODY/DAY
     Route: 042
     Dates: start: 20170614, end: 20170614
  9. INFLIXIMAB BS FOR I.V. INFUSION100 MG [NK] [Suspect]
     Active Substance: INFLIXIMAB
     Indication: COLITIS ULCERATIVE
     Dosage: 250 MG/BODY/DAY
     Route: 042
     Dates: start: 20160525, end: 20160525
  10. RESTAMIN                           /00000401/ [Concomitant]
     Active Substance: DIPHENHYDRAMINE
     Dosage: 30 MG/DAY
     Dates: start: 20161116, end: 20161116
  11. INFLIXIMAB BS FOR I.V. INFUSION100 MG [NK] [Suspect]
     Active Substance: INFLIXIMAB
     Dosage: 300 MG/BODY/DAY
     Route: 042
     Dates: start: 20170111, end: 20170111
  12. INFLIXIMAB BS FOR I.V. INFUSION100 MG [NK] [Suspect]
     Active Substance: INFLIXIMAB
     Dosage: 250 MG/BODY/DAY
     Route: 042
     Dates: start: 20170426, end: 20170426
  13. RESTAMIN                           /00000401/ [Concomitant]
     Active Substance: DIPHENHYDRAMINE
     Indication: PROPHYLAXIS
     Dosage: 30 MG/DAY
     Dates: start: 20160920, end: 20160920
  14. SODIUM FERROUS CITRATE [Concomitant]
     Active Substance: SODIUM FERROUS CITRATE
     Indication: ANAEMIA
     Dosage: 100 MG, DAILY
     Dates: start: 20161021, end: 20161105
  15. TOKISHAKUYAKUSAN                   /08000701/ [Concomitant]
     Active Substance: HERBALS
     Indication: PROPHYLAXIS
     Dosage: 7.5 G/DAY
     Dates: start: 20161021, end: 20161212
  16. ASACOL [Concomitant]
     Active Substance: MESALAMINE
     Dosage: 3600 MG, DAILY
     Dates: start: 20170322
  17. CALONAL [Concomitant]
     Active Substance: ACETAMINOPHEN
     Dosage: 400 MG/DAY
     Dates: start: 20161116, end: 20161116
  18. REBAMIPIDE [Concomitant]
     Active Substance: REBAMIPIDE
     Indication: GASTRITIS PROPHYLAXIS
     Dosage: 200 MG/DAY
     Dates: start: 20161021, end: 20161105
  19. SAWACILLIN [Concomitant]
     Active Substance: AMOXICILLIN
     Indication: INFECTION PROPHYLAXIS
     Dosage: 750 MG/DAY
     Dates: start: 20170101, end: 20170105
  20. INFLIXIMAB BS FOR I.V. INFUSION100 MG [NK] [Suspect]
     Active Substance: INFLIXIMAB
     Dosage: 300 MG/BODY/DAY (FULL BOTTLE)
     Route: 042
     Dates: start: 20170308, end: 20170308
  21. CALONAL [Concomitant]
     Active Substance: ACETAMINOPHEN
     Indication: PROPHYLAXIS
     Dosage: 400 MG/DAY
     Dates: start: 20160920, end: 20160920
  22. INFLIXIMAB BS FOR I.V. INFUSION100 MG [NK] [Suspect]
     Active Substance: INFLIXIMAB
     Dosage: 250 MG/BODY/DAY
     Route: 042
     Dates: start: 20160713, end: 20160713
  23. RESTAMIN                           /00000401/ [Concomitant]
     Active Substance: DIPHENHYDRAMINE
     Dosage: 30 MG/DAY
     Dates: start: 20170308, end: 20170308
  24. CALONAL [Concomitant]
     Active Substance: ACETAMINOPHEN
     Dosage: 400 MG/DAY
     Dates: start: 20170308, end: 20170308
  25. MIYA-BM [Concomitant]
     Active Substance: CLOSTRIDIUM BUTYRICUM SPORES STRAIN M-55
     Indication: COLITIS ULCERATIVE
     Dosage: 40 MG, DAILY
     Dates: start: 20170322

REACTIONS (5)
  - Exposure during pregnancy [Unknown]
  - Exposure during breast feeding [Unknown]
  - Inappropriate schedule of drug administration [Unknown]
  - Herpes virus infection [Recovered/Resolved]
  - Abortion threatened [Recovered/Resolved]

NARRATIVE: CASE EVENT DATE: 20160525
